FAERS Safety Report 8842185 (Version 1)
Quarter: 2012Q4

REPORT INFORMATION
  Report Type: Spontaneous
  Country: US (occurrence: None)
  Receive Date: 20121015
  Receipt Date: 20121015
  Transmission Date: 20130627
  Serious: No
  Sender: FDA-Public Use
  Company Number: None

PATIENT
  Age: 42 Year
  Sex: Male
  Weight: 83.92 kg

DRUGS (3)
  1. METHYLPHENIDATE [Suspect]
     Indication: ADHD
     Route: 048
     Dates: start: 20120412
  2. METHYLPHENIDATE [Suspect]
     Indication: ADHD
     Dates: start: 20120802
  3. METHYLPHENIDATE [Suspect]
     Indication: ADHD
     Dates: start: 20120816

REACTIONS (3)
  - Drug hypersensitivity [None]
  - Drug ineffective [None]
  - Product substitution issue [None]
